FAERS Safety Report 25132237 (Version 1)
Quarter: 2025Q1

REPORT INFORMATION
  Report Type: Spontaneous
  Country: RU (occurrence: RU)
  Receive Date: 20250328
  Receipt Date: 20250328
  Transmission Date: 20250409
  Serious: Yes (Hospitalization)
  Sender: ROCHE
  Company Number: RU-ROCHE-10000235818

PATIENT
  Age: 63 Year
  Sex: Female

DRUGS (1)
  1. ALECTINIB [Suspect]
     Active Substance: ALECTINIB
     Indication: Non-small cell lung cancer stage I
     Route: 048

REACTIONS (12)
  - Malaise [Unknown]
  - Asthenia [Unknown]
  - Dyspnoea [Unknown]
  - Body temperature increased [Unknown]
  - Dyspnoea exertional [Unknown]
  - Pyrexia [Unknown]
  - Interstitial lung disease [Unknown]
  - Pleural effusion [Unknown]
  - Cardiomegaly [Unknown]
  - Renal cyst [Unknown]
  - Hepatic cyst [Unknown]
  - Cough [Unknown]

NARRATIVE: CASE EVENT DATE: 20241030
